FAERS Safety Report 4931611-2 (Version None)
Quarter: 2006Q1

REPORT INFORMATION
  Report Type: 
  Country: None (occurrence: None)
  Receive Date: 20060303
  Receipt Date: 20060221
  Transmission Date: 20060701
  Serious: Yes (Hospitalization)
  Sender: FDA-Public Use
  Company Number: IT-KINGPHARMUSA00001-K200600261

PATIENT
  Age: 1 Year
  Sex: Female

DRUGS (8)
  1. SEPTRA [Suspect]
     Indication: PNEUMOCYSTIS JIROVECI PNEUMONIA
     Dosage: 7.5/37.5 MG/KG, QD
  2. SEPTRA [Suspect]
     Dosage: 20/100 MG/KG, QD
  3. FLUCONAZOLE [Concomitant]
  4. MIDAZOLAM HCL [Concomitant]
  5. MORPHINE [Concomitant]
  6. METHYLPREDNISOLONE [Concomitant]
     Dosage: 2 MG/KG, QD
  7. CIPROFLOXACIN [Concomitant]
  8. ACYCLOVIR SODIUM [Concomitant]

REACTIONS (2)
  - CHOREA [None]
  - TREMOR [None]
